FAERS Safety Report 25250740 (Version 2)
Quarter: 2025Q2

REPORT INFORMATION
  Report Type: Spontaneous
  Country: DE (occurrence: DE)
  Receive Date: 20250429
  Receipt Date: 20250505
  Transmission Date: 20250717
  Serious: Yes (Other)
  Sender: PFIZER
  Company Number: DE-PFIZER INC-PV202500049530

PATIENT
  Age: 76 Year
  Sex: Female
  Weight: 90 kg

DRUGS (7)
  1. CLINDAMYCIN HYDROCHLORIDE [Suspect]
     Active Substance: CLINDAMYCIN HYDROCHLORIDE
     Indication: Device related infection
     Dosage: 300 MG, 3X/DAY
  2. PIRETANIDE [Concomitant]
     Active Substance: PIRETANIDE
  3. FAMOTIDINE [Concomitant]
     Active Substance: FAMOTIDINE
  4. ALLOPURINOL [Concomitant]
     Active Substance: ALLOPURINOL
  5. RAMIPRIL [Concomitant]
     Active Substance: RAMIPRIL
  6. TRIAMTERENE [Concomitant]
     Active Substance: TRIAMTERENE
  7. HEPARIN [Concomitant]
     Active Substance: HEPARIN SODIUM

REACTIONS (2)
  - Ventricular fibrillation [Recovered/Resolved]
  - Long QT syndrome [Recovered/Resolved]
